FAERS Safety Report 8600135-3 (Version None)
Quarter: 2012Q3

REPORT INFORMATION
  Report Type: 
  Country: None (occurrence: None)
  Receive Date: 20120817
  Receipt Date: 20120809
  Transmission Date: 20120928
  Serious: Yes (Hospitalization, Other)
  Sender: FDA-Public Use
  Company Number: CO-AMGEN-COLSP2012051481

PATIENT
  Age: 67 Year
  Sex: Female

DRUGS (2)
  1. METHOTREXATE [Concomitant]
     Indication: RHEUMATOID ARTHRITIS
     Dosage: 5 TABLETS IN THE MORNING AND 5 TABLETS AT NIGHT, 1DAY/WEEK
     Route: 065
     Dates: start: 20040101
  2. ENBREL [Suspect]
     Indication: RHEUMATOID ARTHRITIS
     Dosage: 50 MG, WEEKLY
     Route: 058
     Dates: start: 20060101

REACTIONS (11)
  - ABASIA [None]
  - SPINAL PAIN [None]
  - MALAISE [None]
  - HYPERTENSION [None]
  - ARTHRALGIA [None]
  - ARTHROPATHY [None]
  - URINARY TRACT INFECTION [None]
  - DIABETES MELLITUS [None]
  - OSTEOPOROSIS [None]
  - CARDIAC DISORDER [None]
  - PAIN [None]
